FAERS Safety Report 8493753-7 (Version None)
Quarter: 2012Q3

REPORT INFORMATION
  Report Type: 
  Country: None (occurrence: None)
  Receive Date: 20120706
  Receipt Date: 20120629
  Transmission Date: 20120928
  Serious: Yes (Other)
  Sender: FDA-Public Use
  Company Number: PHEH2012US009974

PATIENT
  Sex: Female
  Weight: 80.28 kg

DRUGS (5)
  1. TOPIRAMATE [Concomitant]
     Dosage: UNK UKN, UNK
  2. TRAMADOL HCL [Concomitant]
  3. CARBAMAZEPINE [Suspect]
     Indication: EPILEPSY
     Dosage: 200 MG, BID
     Route: 048
  4. TEGRETOL [Suspect]
  5. ZOLOFT [Concomitant]

REACTIONS (5)
  - HEADACHE [None]
  - VISION BLURRED [None]
  - FEELING ABNORMAL [None]
  - AMNESIA [None]
  - CONVULSION [None]
